FAERS Safety Report 8529359-0 (Version None)
Quarter: 2012Q3

REPORT INFORMATION
  Report Type: 
  Country: None (occurrence: None)
  Receive Date: 20120723
  Receipt Date: 20120718
  Transmission Date: 20120928
  Serious: Yes (Other)
  Sender: FDA-Public Use
  Company Number: US-TEVA-349222USA

PATIENT
  Age: 40 Year
  Sex: Male

DRUGS (1)
  1. COPAXONE [Suspect]
     Indication: MULTIPLE SCLEROSIS
     Dates: start: 20030101, end: 20120601

REACTIONS (9)
  - INJECTION SITE INJURY [None]
  - LOSS OF CONSCIOUSNESS [None]
  - DEHYDRATION [None]
  - HYPOAESTHESIA ORAL [None]
  - SKIN DISCOLOURATION [None]
  - INJECTION SITE WARMTH [None]
  - DISORIENTATION [None]
  - FORMICATION [None]
  - HEADACHE [None]
